FAERS Safety Report 5717147-X (Version None)
Quarter: 2008Q2

REPORT INFORMATION
  Report Type: 
  Country: None (occurrence: None)
  Receive Date: 20080424
  Receipt Date: 20080415
  Transmission Date: 20081010
  Serious: Yes (Other)
  Sender: FDA-Public Use
  Company Number: US-PFIZER INC-2008033243

PATIENT
  Sex: Female
  Weight: 73.9 kg

DRUGS (3)
  1. GEODON [Suspect]
     Indication: PSYCHOTIC DISORDER
     Dates: start: 20080403, end: 20080414
  2. EFFEXOR [Concomitant]
  3. LAMICTAL [Concomitant]

REACTIONS (9)
  - CHILLS [None]
  - HYPERSOMNIA [None]
  - MASS [None]
  - MUSCLE SPASMS [None]
  - MUSCLE TIGHTNESS [None]
  - MUSCLE TWITCHING [None]
  - SPEECH DISORDER [None]
  - STUPOR [None]
  - TREMOR [None]
